FAERS Safety Report 18996542 (Version 1)
Quarter: 2021Q1

REPORT INFORMATION
  Report Type: Spontaneous
  Country: US (occurrence: US)
  Receive Date: 20210311
  Receipt Date: 20210311
  Transmission Date: 20210420
  Serious: Yes (Life-Threatening, Hospitalization, Disabling)
  Sender: FDA-Public Use
  Company Number: None

PATIENT
  Age: 64 Year
  Sex: Male
  Weight: 99 kg

DRUGS (1)
  1. OCREVUS [Suspect]
     Active Substance: OCRELIZUMAB
     Indication: PROGRESSIVE MULTIPLE SCLEROSIS
     Dosage: ?          OTHER ROUTE:INFUSION?
     Dates: start: 20180101, end: 20201001

REACTIONS (4)
  - Headache [None]
  - Hemiparesis [None]
  - Seizure [None]
  - Memory impairment [None]

NARRATIVE: CASE EVENT DATE: 20200606
